FAERS Safety Report 8390360-1 (Version None)
Quarter: 2012Q2

REPORT INFORMATION
  Report Type: 
  Country: None (occurrence: None)
  Receive Date: 20120529
  Receipt Date: 20120515
  Transmission Date: 20120825
  Serious: Yes (Other)
  Sender: FDA-Public Use
  Company Number: US-JNJFOC-20120513223

PATIENT
  Sex: Female
  Weight: 90.72 kg

DRUGS (8)
  1. METHOTREXATE [Concomitant]
     Indication: RHEUMATOID ARTHRITIS
     Route: 048
     Dates: start: 20120101
  2. FOLIC ACID [Concomitant]
     Indication: RHEUMATOID ARTHRITIS
     Route: 048
     Dates: start: 20120101
  3. REMICADE [Suspect]
     Indication: RHEUMATOID ARTHRITIS
     Route: 042
     Dates: start: 20120323, end: 20120323
  4. REMICADE [Suspect]
     Dosage: EVERY 2 WEEKS AND THEN AT 4 WEEKS
     Route: 042
     Dates: start: 20120209
  5. PREDNISONE TAB [Concomitant]
     Indication: RHEUMATOID ARTHRITIS
     Route: 048
     Dates: start: 20120101
  6. REMICADE [Suspect]
     Route: 042
     Dates: start: 20040101, end: 20050101
  7. ZYRTEC [Concomitant]
     Indication: PREMEDICATION
     Route: 065
  8. REMICADE [Suspect]
     Route: 042
     Dates: start: 20120224

REACTIONS (7)
  - EYE SWELLING [None]
  - INFUSION RELATED REACTION [None]
  - SWELLING [None]
  - HYPERSENSITIVITY [None]
  - RASH GENERALISED [None]
  - PRURITUS GENERALISED [None]
  - URTICARIA [None]
